FAERS Safety Report 17713788 (Version 1)
Quarter: 2020Q2

REPORT INFORMATION
  Report Type: Report from Study
  Country: GB (occurrence: GB)
  Receive Date: 20200427
  Receipt Date: 20200427
  Transmission Date: 20200714
  Serious: Yes (Other)
  Sender: FDA-Public Use
  Company Number: GB-UCBSA-2020016774

PATIENT

DRUGS (1)
  1. ROTIGOTINE [Suspect]
     Active Substance: ROTIGOTINE
     Indication: PARKINSON^S DISEASE
     Dosage: UNK
     Route: 062

REACTIONS (6)
  - Underdose [Unknown]
  - Overdose [Unknown]
  - Delirium [Unknown]
  - Off label use [Unknown]
  - Hallucination [Unknown]
  - Terminal agitation [Unknown]
